FAERS Safety Report 19443193 (Version 2)
Quarter: 2024Q3

REPORT INFORMATION
  Report Type: Spontaneous
  Country: US (occurrence: US)
  Receive Date: 20210621
  Receipt Date: 20240917
  Transmission Date: 20241017
  Serious: Yes (Other)
  Sender: SANOFI AVENTIS
  Company Number: US-SA-SAC20210616000235

PATIENT
  Age: 52 Year
  Sex: Female

DRUGS (7)
  1. AUBAGIO [Suspect]
     Active Substance: TERIFLUNOMIDE
     Indication: Multiple sclerosis
     Dosage: 7 MG, QD
     Route: 048
  2. ALBUTEROL SULFATE [Concomitant]
     Active Substance: ALBUTEROL SULFATE
  3. ZYRTEC [Concomitant]
     Active Substance: CETIRIZINE HYDROCHLORIDE
  4. HYDROXYZINE HYDROCHLORIDE [Concomitant]
     Active Substance: HYDROXYZINE HYDROCHLORIDE
  5. BENADRYL ALLERGY [Concomitant]
     Active Substance: DIPHENHYDRAMINE HYDROCHLORIDE
  6. VITAMIN D3 [Concomitant]
     Active Substance: CHOLECALCIFEROL
  7. CALCIUM [Concomitant]
     Active Substance: CALCIUM

REACTIONS (12)
  - Hemiplegia [Unknown]
  - Cerebrovascular accident [Unknown]
  - Bell^s palsy [Unknown]
  - Pain [Unknown]
  - Fatigue [Unknown]
  - Amenorrhoea [Recovered/Resolved]
  - Amenorrhoea [Unknown]
  - Injury associated with device [Unknown]
  - Dysarthria [Unknown]
  - Heavy menstrual bleeding [Unknown]
  - Heavy menstrual bleeding [Unknown]
  - Hypoaesthesia [Unknown]
